FAERS Safety Report 7127508 (Version 10)
Quarter: 2013Q3

REPORT INFORMATION
  Report Type: Spontaneous
  Country: US (occurrence: US)
  Receive Date: 20090924
  Receipt Date: 20130930
  Transmission Date: 20140515
  Serious: Yes (Other)
  Sender: FDA-Public Use
  Company Number: US-ASTRAZENECA-2008UW25769

PATIENT
  Age: 61 Year
  Sex: Male
  Weight: 120 kg

DRUGS (35)
  1. SEROQUEL [Suspect]
     Indication: MAJOR DEPRESSION
     Route: 048
     Dates: start: 2001
  2. SEROQUEL [Suspect]
     Indication: SLEEP DISORDER
     Route: 048
     Dates: start: 2001
  3. SEROQUEL [Suspect]
     Indication: ANXIETY
     Route: 048
     Dates: start: 2001
  4. SEROQUEL [Suspect]
     Indication: MAJOR DEPRESSION
     Route: 048
  5. SEROQUEL [Suspect]
     Indication: SLEEP DISORDER
     Route: 048
  6. SEROQUEL [Suspect]
     Indication: ANXIETY
     Route: 048
  7. SEROQUEL [Suspect]
     Indication: MAJOR DEPRESSION
     Route: 048
  8. SEROQUEL [Suspect]
     Indication: SLEEP DISORDER
     Route: 048
  9. SEROQUEL [Suspect]
     Indication: ANXIETY
     Route: 048
  10. SEROQUEL [Suspect]
     Indication: MAJOR DEPRESSION
     Route: 048
  11. SEROQUEL [Suspect]
     Indication: SLEEP DISORDER
     Route: 048
  12. SEROQUEL [Suspect]
     Indication: ANXIETY
     Route: 048
  13. TYLENOL [Concomitant]
     Indication: BACK DISORDER
     Route: 048
  14. FLEXERIL [Concomitant]
     Indication: BACK DISORDER
     Dosage: TWO TIMES A DAY
  15. FLEXERIL [Concomitant]
     Indication: MUSCLE RELAXANT THERAPY
     Dosage: TWO TIMES A DAY
  16. FLEXERIL [Concomitant]
     Indication: ANALGESIC THERAPY
     Dosage: TWO TIMES A DAY
  17. FLEXERIL [Concomitant]
     Indication: BACK DISORDER
  18. FLEXERIL [Concomitant]
     Indication: MUSCLE RELAXANT THERAPY
  19. FLEXERIL [Concomitant]
     Indication: ANALGESIC THERAPY
  20. LORAZEPAM [Concomitant]
     Indication: ANXIETY
     Dosage: 1-6 TABLETS AS REQUIRED
     Route: 048
     Dates: start: 1994
  21. LORAZEPAM [Concomitant]
     Indication: PANIC ATTACK
     Dosage: 1-6 TABLETS AS REQUIRED
     Route: 048
     Dates: start: 1994
  22. ACCUPRIL [Concomitant]
     Indication: HYPERTENSION
     Route: 048
     Dates: start: 1995
  23. ACCUPRIL [Concomitant]
     Indication: HYPERTENSION
     Dosage: GENERIC
     Route: 048
  24. SYMVASTIN/ZOCOR [Concomitant]
     Indication: BLOOD CHOLESTEROL ABNORMAL
     Route: 048
     Dates: start: 2004
  25. AMBIEN [Concomitant]
     Indication: SLEEP DISORDER
     Route: 048
     Dates: start: 1995
  26. COREG [Concomitant]
     Indication: ATRIAL FIBRILLATION
     Route: 048
     Dates: start: 1997
  27. COREG [Concomitant]
     Indication: ARRHYTHMIA
     Route: 048
     Dates: start: 1997
  28. MONOHYDRATE [Concomitant]
  29. CODEINE [Concomitant]
     Indication: MUSCLE RELAXANT THERAPY
  30. CODEINE [Concomitant]
     Indication: ANALGESIC THERAPY
  31. CHLOROHYDRATE [Concomitant]
  32. LASIX [Concomitant]
     Indication: CARDIAC FAILURE CONGESTIVE
     Route: 048
  33. LASIX [Concomitant]
     Indication: CARDIAC FAILURE CONGESTIVE
     Dosage: 70-80 MG DAILY
     Route: 048
  34. ACETAMINOPHEN [Concomitant]
     Dosage: AS REQUIRED
  35. SPIRONOLACTONE [Concomitant]
     Indication: CARDIAC FAILURE CONGESTIVE
     Route: 048
     Dates: start: 201307

REACTIONS (28)
  - Suicidal ideation [Unknown]
  - Back pain [Recovered/Resolved]
  - Pain [Unknown]
  - Blood pressure increased [Unknown]
  - Dysgraphia [Unknown]
  - Depressed mood [Recovered/Resolved with Sequelae]
  - Emotional distress [Unknown]
  - Amnesia [Unknown]
  - Pain in extremity [Recovered/Resolved]
  - Malaise [Recovered/Resolved]
  - Insomnia [Unknown]
  - Anxiety [Unknown]
  - Sleep disorder [Unknown]
  - Diabetes mellitus [Not Recovered/Not Resolved]
  - Crying [Recovered/Resolved]
  - Hypersomnia [Recovered/Resolved]
  - Blood glucose increased [Unknown]
  - Nightmare [Unknown]
  - Weight increased [Unknown]
  - Dry mouth [Unknown]
  - Blood cholesterol increased [Not Recovered/Not Resolved]
  - Therapeutic response unexpected [Unknown]
  - Abdominal distension [Unknown]
  - Drug dose omission [Unknown]
  - Intentional drug misuse [Unknown]
  - Off label use [Unknown]
  - Therapeutic response decreased [Unknown]
  - Drug ineffective for unapproved indication [Unknown]
